FAERS Safety Report 16668335 (Version 1)
Quarter: 2019Q3

REPORT INFORMATION
  Report Type: Spontaneous
  Country: HR (occurrence: HR)
  Receive Date: 20190805
  Receipt Date: 20190805
  Transmission Date: 20191004
  Serious: Yes (Other)
  Sender: FDA-Public Use
  Company Number: HR-JNJFOC-20190802616

PATIENT
  Age: 22 Year
  Sex: Male

DRUGS (2)
  1. HALDOL [Suspect]
     Active Substance: HALOPERIDOL
     Indication: PRODUCT USED FOR UNKNOWN INDICATION
     Dosage: 10AK HALDOLA OD 2 MG
     Route: 048
     Dates: start: 20190422, end: 20190422
  2. NORMABEL [Suspect]
     Active Substance: DIAZEPAM
     Indication: PRODUCT USED FOR UNKNOWN INDICATION
     Dosage: 10 NORMABELA (NE ZNA SE OD KOLIKO)
     Route: 048
     Dates: start: 20190422, end: 20190422

REACTIONS (3)
  - No adverse event [Unknown]
  - Intentional overdose [Unknown]
  - Suicide attempt [Unknown]

NARRATIVE: CASE EVENT DATE: 20190422
